FAERS Safety Report 13205071 (Version 1)
Quarter: 2017Q1

REPORT INFORMATION
  Report Type: Report from Study
  Country: US (occurrence: US)
  Receive Date: 20170209
  Receipt Date: 20170209
  Transmission Date: 20170428
  Serious: Yes (Other)
  Sender: FDA-Public Use
  Company Number: US-ALEXION PHARMACEUTICALS INC.-A201701154

PATIENT
  Sex: Female

DRUGS (1)
  1. SOLIRIS [Suspect]
     Active Substance: ECULIZUMAB
     Indication: HAEMOLYTIC URAEMIC SYNDROME
     Route: 042

REACTIONS (7)
  - Irritability [Unknown]
  - Skin sensitisation [Unknown]
  - Headache [Unknown]
  - Anxiety [Unknown]
  - Artificial menopause [Unknown]
  - Amnesia [Unknown]
  - Influenza like illness [Unknown]
